FAERS Safety Report 7562331-6 (Version None)
Quarter: 2011Q2

REPORT INFORMATION
  Report Type: 
  Country: None (occurrence: None)
  Receive Date: 20110622
  Receipt Date: 20110609
  Transmission Date: 20111010
  Serious: Yes (Other)
  Sender: FDA-Public Use
  Company Number: FR-JNJFOC-20110606162

PATIENT
  Sex: Male
  Weight: 35 kg

DRUGS (2)
  1. RISPERDAL [Suspect]
     Indication: AGITATION
     Route: 048
  2. CONCERTA [Suspect]
     Indication: AGITATION
     Route: 048

REACTIONS (7)
  - DROOLING [None]
  - DYSARTHRIA [None]
  - INCORRECT DOSE ADMINISTERED [None]
  - OFF LABEL USE [None]
  - DYSTONIA [None]
  - DYSPNOEA [None]
  - HYPERSOMNIA [None]
